FAERS Safety Report 7955585-5 (Version None)
Quarter: 2011Q4

REPORT INFORMATION
  Report Type: 
  Country: None (occurrence: None)
  Receive Date: 20111202
  Receipt Date: 20111128
  Transmission Date: 20120403
  Serious: Yes (Life-Threatening, Hospitalization, Other)
  Sender: FDA-Public Use
  Company Number: US-ASTRAZENECA-2011SE38185

PATIENT
  Age: 60 Year
  Sex: Female

DRUGS (6)
  1. SEROQUEL XR [Suspect]
     Route: 048
  2. SEROQUEL XR [Suspect]
     Route: 048
  3. SEROQUEL XR [Suspect]
     Route: 048
  4. ATIVAN [Concomitant]
  5. KLONOPIN [Concomitant]
  6. LITHIUM [Concomitant]

REACTIONS (5)
  - COMA [None]
  - PNEUMONIA ASPIRATION [None]
  - CONVULSION [None]
  - DRUG DOSE OMISSION [None]
  - PNEUMONIA [None]
